FAERS Safety Report 6704427-4 (Version None)
Quarter: 2010Q2

REPORT INFORMATION
  Report Type: 
  Country: None (occurrence: None)
  Receive Date: 20100430
  Receipt Date: 20100427
  Transmission Date: 20101027
  Serious: Yes (Hospitalization)
  Sender: FDA-Public Use
  Company Number: US-BRISTOL-MYERS SQUIBB COMPANY-15081466

PATIENT
  Age: 44 Year
  Sex: Male
  Weight: 141 kg

DRUGS (4)
  1. ARIPIPRAZOLE [Suspect]
     Indication: SCHIZOPHRENIA
     Dates: start: 20081001
  2. WELLBUTRIN SR [Concomitant]
     Dosage: 1 DF= 150 UNIT NOS
     Dates: start: 20100120
  3. PERCOCET [Concomitant]
     Indication: PAIN
     Dates: start: 20100421
  4. FENERGAN [Concomitant]
     Indication: NAUSEA
     Dates: start: 20100421

REACTIONS (1)
  - CHOLELITHIASIS [None]
